FAERS Safety Report 6973361-7 (Version None)
Quarter: 2010Q3

REPORT INFORMATION
  Report Type: 
  Country: None (occurrence: None)
  Receive Date: 20100909
  Receipt Date: 20100902
  Transmission Date: 20110219
  Serious: Yes (Other)
  Sender: FDA-Public Use
  Company Number: US-JNJFOC-20100901693

PATIENT
  Sex: Male
  Weight: 37.65 kg

DRUGS (2)
  1. CONCERTA [Suspect]
     Indication: ATTENTION DEFICIT/HYPERACTIVITY DISORDER
     Dosage: DAILY MONDAY TO FRIDAY
     Route: 048
  2. CONCERTA [Suspect]
     Dosage: DAILY MONDAY TO FRIDAY
     Route: 048

REACTIONS (2)
  - DECREASED APPETITE [None]
  - TYPE 1 DIABETES MELLITUS [None]
